FAERS Safety Report 4296816-5 (Version None)
Quarter: 2004Q1

REPORT INFORMATION
  Report Type: 
  Country: None (occurrence: None)
  Receive Date: 20040217
  Receipt Date: 20040116
  Transmission Date: 20041129
  Serious: Yes (Disabling, Other)
  Sender: FDA-Public Use
  Company Number: PHFR2004GB00697

PATIENT
  Age: 54 Year
  Sex: Female

DRUGS (1)
  1. LAMISIL [Suspect]
     Indication: ONYCHOMYCOSIS
     Dosage: 250 MG, QD
     Route: 048
     Dates: start: 20031222, end: 20040115

REACTIONS (5)
  - AGEUSIA [None]
  - APTYALISM [None]
  - DRY MOUTH [None]
  - EATING DISORDER [None]
  - WEIGHT DECREASED [None]
